FAERS Safety Report 7625368-4 (Version None)
Quarter: 2011Q3

REPORT INFORMATION
  Report Type: 
  Country: None (occurrence: None)
  Receive Date: 20110721
  Receipt Date: 20110718
  Transmission Date: 20111222
  Serious: Yes (Other)
  Sender: FDA-Public Use
  Company Number: US-BAYER-2011-062500

PATIENT
  Age: 63 Year
  Sex: Female

DRUGS (1)
  1. BETASERON [Suspect]
     Indication: RELAPSING-REMITTING MULTIPLE SCLEROSIS
     Dosage: 1 ML, QOD
     Dates: start: 19990101, end: 20110709

REACTIONS (7)
  - LYME DISEASE [None]
  - HEADACHE [None]
  - FALL [None]
  - SINUS DISORDER [None]
  - CHILLS [None]
  - PYREXIA [None]
  - TREMOR [None]
